APPROVED DRUG PRODUCT: ASTRAMORPH PF
Active Ingredient: MORPHINE SULFATE
Strength: 1MG/ML
Dosage Form/Route: INJECTABLE;INJECTION
Application: A071052 | Product #001
Applicant: FRESENIUS KABI USA LLC
Approved: Oct 7, 1986 | RLD: No | RS: No | Type: DISCN